FAERS Safety Report 8611766-9 (Version None)
Quarter: 2012Q3

REPORT INFORMATION
  Report Type: 
  Country: None (occurrence: None)
  Receive Date: 20120822
  Receipt Date: 20120814
  Transmission Date: 20120928
  Serious: Yes (Hospitalization, Other)
  Sender: FDA-Public Use
  Company Number: US-BAYER-2012-054820

PATIENT
  Age: 36 Year
  Sex: Female
  Weight: 62.132 kg

DRUGS (4)
  1. YAZ [Suspect]
     Dosage: UNK
     Dates: start: 20080101
  2. CLOBETASOL PROPIONATE [Concomitant]
     Dosage: 0.05/5 GEL,UNK
     Dates: start: 20080420
  3. YASMIN [Suspect]
  4. MOTRIN [Concomitant]
     Dosage: 500 MG, UNK
     Dates: start: 20080611

REACTIONS (4)
  - THROMBOSIS [None]
  - INJURY [None]
  - PULMONARY EMBOLISM [None]
  - PAIN [None]
